FAERS Safety Report 22249114 (Version 1)
Quarter: 2023Q2

REPORT INFORMATION
  Report Type: Report from Study
  Country: IT (occurrence: IT)
  Receive Date: 20230425
  Receipt Date: 20230425
  Transmission Date: 20230722
  Serious: Yes (Other)
  Sender: FDA-Public Use
  Company Number: None

PATIENT
  Age: 61 Year
  Sex: Female
  Weight: 59 kg

DRUGS (4)
  1. OXALIPLATIN [Suspect]
     Active Substance: OXALIPLATIN
     Indication: Colorectal adenocarcinoma
     Dosage: DURING CYCLE NO.4 OF THERAPY THE PATIENT WAS ADMINISTERED 208 MG OF
     Dates: start: 20230109, end: 20230109
  2. CAPECITABINE [Suspect]
     Active Substance: CAPECITABINE
     Indication: Colorectal adenocarcinoma
     Dosage: DURING CYCLE NO.4 OF THERAPY THE PATIENT TOOK 3000 MG OF CAPECITABINE PER
     Dates: start: 20230110, end: 20230117
  3. DEXAMETHASONE [Concomitant]
     Active Substance: DEXAMETHASONE
     Dosage: THE PATIENT TAKES DEXAMETHASONE 4 MG, 1 TABLET PER DAY FOR 3 DAYS AFTER THE
     Dates: start: 20230110, end: 20230115
  4. LANSOPRAZOLE [Concomitant]
     Active Substance: LANSOPRAZOLE
     Dosage: THE PATIENT TAKES 30 MG OF LANSOPRAZOLE, 1 TIME A DAY

REACTIONS (1)
  - Haematochezia [Recovered/Resolved]

NARRATIVE: CASE EVENT DATE: 20230116
